FAERS Safety Report 21459958 (Version 1)
Quarter: 2022Q4

REPORT INFORMATION
  Report Type: Spontaneous
  Country: CN (occurrence: None)
  Receive Date: 20221014
  Receipt Date: 20221014
  Transmission Date: 20230113
  Serious: Yes (Hospitalization)
  Sender: FDA-Public Use
  Company Number: 2022A343754

PATIENT
  Age: 47 Year
  Sex: Female

DRUGS (4)
  1. SYMBICORT [Suspect]
     Active Substance: BUDESONIDE\FORMOTEROL FUMARATE DIHYDRATE
     Indication: Asthma
     Dosage: TWICE A DAY
     Route: 055
     Dates: start: 201312
  2. AMINOPHYLLINE [Suspect]
     Active Substance: AMINOPHYLLINE
     Indication: Asthma
     Route: 048
     Dates: start: 201312
  3. SINGULAIR [Suspect]
     Active Substance: MONTELUKAST SODIUM
     Indication: Asthma
     Route: 065
     Dates: start: 201312
  4. PREDNISONE [Suspect]
     Active Substance: PREDNISONE
     Indication: Asthma
     Dosage: 25MG TWICE A DAY
     Route: 048
     Dates: start: 201505

REACTIONS (3)
  - Dyspnoea [Recovering/Resolving]
  - Chest discomfort [Recovering/Resolving]
  - Drug ineffective [Unknown]
